FAERS Safety Report 9001091 (Version 1)
Quarter: 2013Q1

REPORT INFORMATION
  Report Type: Spontaneous
  Country: US (occurrence: US)
  Receive Date: 20130107
  Receipt Date: 20130107
  Transmission Date: 20140127
  Serious: Yes (Other)
  Sender: FDA-Public Use
  Company Number: US-SANOFI-AVENTIS-2012SA095259

PATIENT
  Age: 55 Year
  Sex: Female

DRUGS (3)
  1. LANTUS [Suspect]
     Dosage: DOSE:15 UNIT(S)
     Route: 058
     Dates: start: 201211
  2. LANTUS [Suspect]
     Dosage: DOSE:32 UNIT(S)
     Route: 058
  3. HUMULIN R [Suspect]
     Route: 065

REACTIONS (3)
  - Eye haemorrhage [Not Recovered/Not Resolved]
  - Visual impairment [Not Recovered/Not Resolved]
  - Weight increased [Unknown]
